FAERS Safety Report 6484213-3 (Version None)
Quarter: 2009Q4

REPORT INFORMATION
  Report Type: 
  Country: None (occurrence: None)
  Receive Date: 20091209
  Receipt Date: 20091204
  Transmission Date: 20100525
  Serious: Yes (Other)
  Sender: FDA-Public Use
  Company Number: A0833621A

PATIENT
  Age: 60 Year
  Sex: Female

DRUGS (11)
  1. FLOVENT [Suspect]
     Indication: ASTHMA
     Dosage: 1PUFF TWICE PER DAY
     Route: 055
     Dates: start: 20090723
  2. PROAIR HFA [Suspect]
     Indication: ASTHMA
     Dosage: 1PUFF AS REQUIRED
     Route: 055
     Dates: start: 20090701
  3. DILTIAZEM [Concomitant]
  4. DIOVAN [Concomitant]
  5. CELEXA [Concomitant]
  6. OSCAL [Concomitant]
  7. DYAZIDE [Concomitant]
  8. NICOTINE [Concomitant]
  9. PRAVASTATIN [Concomitant]
  10. MIRALAX [Concomitant]
  11. ASPIRIN [Concomitant]

REACTIONS (9)
  - ARRHYTHMIA [None]
  - ASTHMA [None]
  - CHEST DISCOMFORT [None]
  - DRUG ADMINISTRATION ERROR [None]
  - DRUG INEFFECTIVE [None]
  - DYSPHONIA [None]
  - FEELING ABNORMAL [None]
  - INHALATION THERAPY [None]
  - LUNG NEOPLASM [None]
